FAERS Safety Report 8270899-X (Version None)
Quarter: 2012Q2

REPORT INFORMATION
  Report Type: 
  Country: None (occurrence: None)
  Receive Date: 20120410
  Receipt Date: 20120405
  Transmission Date: 20120825
  Serious: Yes (Other)
  Sender: FDA-Public Use
  Company Number: US-PFIZER INC-2012086717

PATIENT
  Sex: Female
  Weight: 68.027 kg

DRUGS (3)
  1. NAMENDA [Concomitant]
     Dosage: UNK
  2. LIPITOR [Suspect]
     Indication: BLOOD CHOLESTEROL INCREASED
     Dosage: 10 MG, 1X/DAY
     Route: 048
     Dates: start: 20040101
  3. ZETIA [Concomitant]
     Dosage: UNK

REACTIONS (1)
  - HYPERTENSION [None]
